FAERS Safety Report 12498092 (Version 1)
Quarter: 2016Q2

REPORT INFORMATION
  Report Type: Spontaneous
  Country: GB (occurrence: GB)
  Receive Date: 20160626
  Receipt Date: 20160626
  Transmission Date: 20160815
  Serious: Yes (Disabling)
  Sender: FDA-Public Use
  Company Number: GB-MYLANLABS-2016M1025168

PATIENT

DRUGS (3)
  1. CLARITHROMYCIN. [Suspect]
     Active Substance: CLARITHROMYCIN
     Indication: TONSILLITIS
     Dosage: 500 MG, BID
     Route: 048
     Dates: start: 20160603, end: 20160605
  2. MERCILON [Concomitant]
     Active Substance: DESOGESTREL\ETHINYL ESTRADIOL
  3. CITALOPRAM [Concomitant]
     Active Substance: CITALOPRAM HYDROBROMIDE
     Dosage: UNK

REACTIONS (5)
  - Hallucination, auditory [Recovering/Resolving]
  - Tinnitus [Recovering/Resolving]
  - Tension [Recovering/Resolving]
  - Thinking abnormal [Recovering/Resolving]
  - Psychotic disorder [Recovering/Resolving]
